FAERS Safety Report 8537916-0 (Version None)
Quarter: 2012Q3

REPORT INFORMATION
  Report Type: 
  Country: None (occurrence: None)
  Receive Date: 20120725
  Receipt Date: 20120511
  Transmission Date: 20120928
  Serious: Yes (Hospitalization)
  Sender: FDA-Public Use
  Company Number: FR-GLAXOSMITHKLINE-B0801055A

PATIENT
  Sex: Female

DRUGS (5)
  1. AUGMENTIN '500' [Suspect]
     Indication: ODYNOPHAGIA
     Route: 065
     Dates: start: 20120428
  2. VOLTAREN [Concomitant]
     Indication: ODYNOPHAGIA
     Route: 065
     Dates: start: 20120428
  3. CLOBAZAM [Concomitant]
     Indication: EPILEPSY
     Route: 065
     Dates: start: 20120401
  4. OESTROPROGESTATIVE CONTRACEPTION [Concomitant]
  5. LAMICTAL [Suspect]
     Indication: EPILEPSY
     Route: 048
     Dates: start: 20120404

REACTIONS (17)
  - STEVENS-JOHNSON SYNDROME [None]
  - OXYGEN SATURATION DECREASED [None]
  - RESPIRATORY DISORDER [None]
  - BLISTER [None]
  - PURPURA [None]
  - PRURITUS GENERALISED [None]
  - HYPERTHERMIA [None]
  - SCAB [None]
  - SKIN EXFOLIATION [None]
  - TOXIC EPIDERMAL NECROLYSIS [None]
  - NONSPECIFIC REACTION [None]
  - ERYTHEMA [None]
  - CONJUNCTIVAL DISORDER [None]
  - ORAL DISORDER [None]
  - ODYNOPHAGIA [None]
  - RASH MACULAR [None]
  - RASH ERYTHEMATOUS [None]
